FAERS Safety Report 26157810 (Version 1)
Quarter: 2025Q4

REPORT INFORMATION
  Report Type: Spontaneous
  Country: US (occurrence: None)
  Receive Date: 20251213
  Receipt Date: 20251213
  Transmission Date: 20260118
  Serious: Yes (Hospitalization)
  Sender: FDA-CTU
  Company Number: None

PATIENT
  Age: 58 Year
  Sex: Male
  Weight: 101.6 kg

DRUGS (1)
  1. FEMARA [Suspect]
     Active Substance: LETROZOLE
     Dates: end: 20251024

REACTIONS (1)
  - Abdominal pain [None]

NARRATIVE: CASE EVENT DATE: 20251025
